FAERS Safety Report 8076307-6 (Version None)
Quarter: 2012Q1

REPORT INFORMATION
  Report Type: 
  Country: None (occurrence: None)
  Receive Date: 20120127
  Receipt Date: 20120119
  Transmission Date: 20120608
  Serious: Yes (Other)
  Sender: FDA-Public Use
  Company Number: BR-ROCHE-1001873

PATIENT
  Sex: Female

DRUGS (1)
  1. MABTHERA [Suspect]
     Indication: RHEUMATOID ARTHRITIS
     Route: 042
     Dates: start: 20100501

REACTIONS (4)
  - THERAPEUTIC RESPONSE DECREASED [None]
  - TOOTH DISORDER [None]
  - OSTEOARTHRITIS [None]
  - SPINAL OSTEOARTHRITIS [None]
